FAERS Safety Report 8971531 (Version 3)
Quarter: 2013Q2

REPORT INFORMATION
  Report Type: Report from Study
  Country: AR (occurrence: AR)
  Receive Date: 20121218
  Receipt Date: 20130624
  Transmission Date: 20140414
  Serious: Yes (Other)
  Sender: FDA-Public Use
  Company Number: PHHY2012AR116669

PATIENT
  Age: 34 Year
  Sex: Female

DRUGS (2)
  1. TEGRETOL 400 LC [Suspect]
     Dosage: UNK UKN, UNK
     Route: 048
  2. TEGRETOL 400 LC [Suspect]
     Dosage: UNK UKN, UNK
     Route: 048
     Dates: start: 201212

REACTIONS (3)
  - Convulsion [Not Recovered/Not Resolved]
  - Loss of consciousness [Not Recovered/Not Resolved]
  - Head injury [Not Recovered/Not Resolved]
